FAERS Safety Report 7214657-3 (Version None)
Quarter: 2011Q1

REPORT INFORMATION
  Report Type: 
  Country: None (occurrence: None)
  Receive Date: 20110107
  Receipt Date: 20101013
  Transmission Date: 20110831
  Serious: Yes (Death, Hospitalization)
  Sender: FDA-Public Use
  Company Number: PHHY2010EC78091

PATIENT
  Age: 92 Year
  Sex: Female

DRUGS (1)
  1. EXELON [Suspect]
     Dosage: 4.5MG/9CM DAILY
     Route: 062
     Dates: start: 20100601

REACTIONS (1)
  - RESPIRATORY ARREST [None]
